FAERS Safety Report 5940510-9 (Version None)
Quarter: 2008Q4

REPORT INFORMATION
  Report Type: 
  Country: None (occurrence: None)
  Receive Date: 20081103
  Receipt Date: 20081103
  Transmission Date: 20090506
  Serious: No
  Sender: FDA-Public Use
  Company Number: None

PATIENT
  Age: 25 Year
  Sex: Female

DRUGS (1)
  1. PRIMATENE MIST [Suspect]
     Dosage: INHALANT
     Route: 055

REACTIONS (5)
  - CONGENITAL ANOMALY [None]
  - LIMB DEFORMITY [None]
  - MATERNAL DRUGS AFFECTING FOETUS [None]
  - MEDICATION ERROR [None]
  - SPINE MALFORMATION [None]
